FAERS Safety Report 8203263-X (Version None)
Quarter: 2012Q1

REPORT INFORMATION
  Report Type: 
  Country: None (occurrence: None)
  Receive Date: 20120312
  Receipt Date: 20120309
  Transmission Date: 20120608
  Serious: Yes (Death)
  Sender: FDA-Public Use
  Company Number: SI-ROCHE-1047332

PATIENT
  Sex: Male

DRUGS (4)
  1. PAROXETINE HCL [Concomitant]
  2. COPEGUS [Suspect]
     Indication: HEPATITIS C
     Dates: start: 20120104
  3. NAPROSYN [Concomitant]
  4. PEGINTERFERON ALFA-2A [Suspect]
     Indication: HEPATITIS C
     Dates: start: 20120104

REACTIONS (1)
  - SUDDEN DEATH [None]
